FAERS Safety Report 18451930 (Version 1)
Quarter: 2020Q4

REPORT INFORMATION
  Report Type: Spontaneous
  Country: US (occurrence: US)
  Receive Date: 20201030
  Receipt Date: 20201030
  Transmission Date: 20210114
  Serious: Yes (Other)
  Sender: FDA-Public Use
  Company Number: None

PATIENT
  Age: 34 Year
  Sex: Female
  Weight: 78.75 kg

DRUGS (6)
  1. BIOTIN [Concomitant]
     Active Substance: BIOTIN
  2. WELLBUTRIN [Suspect]
     Active Substance: BUPROPION HYDROCHLORIDE
     Indication: DELUSIONAL DISORDER, EROTOMANIC TYPE
     Route: 048
     Dates: start: 20200827, end: 20200904
  3. HYDROXYZINE [Concomitant]
     Active Substance: HYDROXYZINE HYDROCHLORIDE
  4. LATUDA [Concomitant]
     Active Substance: LURASIDONE HYDROCHLORIDE
  5. LAMOTRIGINE. [Concomitant]
     Active Substance: LAMOTRIGINE
  6. MULTIVITE [Concomitant]
     Active Substance: VITAMINS

REACTIONS (3)
  - Product substitution issue [None]
  - Suicide attempt [None]
  - Delusion [None]

NARRATIVE: CASE EVENT DATE: 20200906
